FAERS Safety Report 25617838 (Version 2)
Quarter: 2025Q3

REPORT INFORMATION
  Report Type: Report from Study
  Country: US (occurrence: US)
  Receive Date: 20250729
  Receipt Date: 20250821
  Transmission Date: 20251021
  Serious: Yes (Hospitalization, Other)
  Sender: ALEXION PHARMACEUTICALS
  Company Number: US-AstraZeneca-CH-00915136A

PATIENT

DRUGS (1)
  1. ULTOMIRIS [Suspect]
     Active Substance: RAVULIZUMAB-CWVZ
     Route: 065

REACTIONS (13)
  - Platelet count decreased [Not Recovered/Not Resolved]
  - Haemorrhage intracranial [Unknown]
  - Haemoglobin decreased [Unknown]
  - Hypersensitivity [Unknown]
  - Asthma [Unknown]
  - Hypoaesthesia [Unknown]
  - Fatigue [Unknown]
  - Asthenia [Unknown]
  - Pyrexia [Unknown]
  - White blood cell count decreased [Unknown]
  - Infection [Unknown]
  - Drug ineffective [Unknown]
  - Poor venous access [Unknown]
